FAERS Safety Report 12888188 (Version 2)
Quarter: 2016Q4

REPORT INFORMATION
  Report Type: Spontaneous
  Country: JP (occurrence: JP)
  Receive Date: 20161027
  Receipt Date: 20161114
  Transmission Date: 20170207
  Serious: Yes (Other)
  Sender: FDA-Public Use
  Company Number: JP-009507513-1610JPN012070

PATIENT
  Age: 3 Year
  Sex: Male

DRUGS (1)
  1. TEMODAL [Suspect]
     Active Substance: TEMOZOLOMIDE
     Indication: ASTROCYTOMA, LOW GRADE
     Dosage: UNK
     Route: 048

REACTIONS (2)
  - Paresis [Recovering/Resolving]
  - Intracranial tumour haemorrhage [Unknown]
